FAERS Safety Report 9349543 (Version 5)
Quarter: 2015Q2

REPORT INFORMATION
  Report Type: Spontaneous
  Country: JP (occurrence: JP)
  Receive Date: 20130614
  Receipt Date: 20150416
  Transmission Date: 20150821
  Serious: No
  Sender: FDA-Public Use
  Company Number: JP-GLAXOSMITHKLINE-B0895357A

PATIENT
  Age: 35 Year

DRUGS (2)
  1. VOTRIENT [Suspect]
     Active Substance: PAZOPANIB HYDROCHLORIDE
     Indication: ANGIOSARCOMA
     Dosage: UNK
     Route: 048
     Dates: start: 20130520
  2. VOTRIENT [Suspect]
     Active Substance: PAZOPANIB HYDROCHLORIDE
     Route: 048

REACTIONS (8)
  - Pyrexia [Recovered/Resolved]
  - Malaise [Unknown]
  - Diarrhoea [Not Recovered/Not Resolved]
  - Blood bilirubin increased [Unknown]
  - Blood thyroid stimulating hormone decreased [Recovered/Resolved]
  - Platelet count decreased [Unknown]
  - Decreased appetite [Unknown]
  - Nausea [Recovered/Resolved]
